FAERS Safety Report 9517438 (Version 1)
Quarter: 2013Q3

REPORT INFORMATION
  Report Type: Spontaneous
  Country: DK (occurrence: IE)
  Receive Date: 20130911
  Receipt Date: 20130911
  Transmission Date: 20140515
  Serious: Yes (Hospitalization)
  Sender: FDA-Public Use
  Company Number: IE-FRI-1000048686

PATIENT
  Age: 20 Year
  Sex: Female

DRUGS (8)
  1. ESCITALOPRAM [Suspect]
     Indication: ANXIETY
  2. FENTANYL [Suspect]
     Indication: ANAESTHESIA
     Route: 042
     Dates: start: 20130704
  3. DEXAMETHASONE [Concomitant]
  4. CO-AMOXICLAV [Concomitant]
  5. EPHEDRINE [Concomitant]
  6. SEVOFLURANE [Concomitant]
  7. REMIFENTANIL [Concomitant]
  8. PROPOFOL [Concomitant]

REACTIONS (4)
  - Tachycardia [Recovered/Resolved]
  - Muscle rigidity [Recovered/Resolved]
  - Hypotonia [Recovered/Resolved]
  - Hypotension [Recovered/Resolved]
